FAERS Safety Report 20531763 (Version 2)
Quarter: 2022Q2

REPORT INFORMATION
  Report Type: Spontaneous
  Country: MX (occurrence: MX)
  Receive Date: 20220301
  Receipt Date: 20220407
  Transmission Date: 20220721
  Serious: No
  Sender: FDA-Public Use
  Company Number: MX-PFIZER INC-202200192990

PATIENT
  Age: 10 Year
  Sex: Male

DRUGS (1)
  1. GENOTROPIN [Suspect]
     Active Substance: SOMATROPIN
     Dosage: UNK
     Route: 058
     Dates: start: 20190128

REACTIONS (2)
  - Drug dose omission by device [Recovering/Resolving]
  - Device mechanical issue [Recovering/Resolving]

NARRATIVE: CASE EVENT DATE: 20220201
